FAERS Safety Report 16385104 (Version 2)
Quarter: 2019Q2

REPORT INFORMATION
  Report Type: Spontaneous
  Country: US (occurrence: US)
  Receive Date: 20190603
  Receipt Date: 20190612
  Transmission Date: 20190711
  Serious: No
  Sender: FDA-Public Use
  Company Number: US-GILEAD-2019-0411321

PATIENT
  Age: 28 Year
  Sex: Male

DRUGS (3)
  1. GENVOYA [Suspect]
     Active Substance: COBICISTAT\ELVITEGRAVIR\EMTRICITABINE\TENOFOVIR ALAFENAMIDE FUMARATE
     Indication: HIV INFECTION
     Dosage: 1 MG, QD 150/150/200/10MG
     Route: 048
     Dates: start: 201810, end: 20190529
  2. ZYRTEC [Concomitant]
     Active Substance: CETIRIZINE HYDROCHLORIDE
     Indication: HYPERSENSITIVITY
     Dosage: UNKNOWN
  3. GENVOYA [Suspect]
     Active Substance: COBICISTAT\ELVITEGRAVIR\EMTRICITABINE\TENOFOVIR ALAFENAMIDE FUMARATE
     Dosage: 1 DOSE FORM QD 150/150/200/10MG
     Route: 048
     Dates: start: 20190531

REACTIONS (1)
  - Intentional dose omission [Recovered/Resolved]

NARRATIVE: CASE EVENT DATE: 20190530
